FAERS Safety Report 5517847-0 (Version None)
Quarter: 2007Q4

REPORT INFORMATION
  Report Type: 
  Country: None (occurrence: None)
  Receive Date: 20071113
  Receipt Date: 20071105
  Transmission Date: 20080405
  Serious: Yes (Other)
  Sender: FDA-Public Use
  Company Number: 163-20785-07091397

PATIENT

DRUGS (5)
  1. THALOMID [Suspect]
     Indication: MULTIPLE MYELOMA
     Dosage: QHS, ORAL; ORAL
     Route: 048
     Dates: start: 20070619, end: 20070814
  2. THALOMID [Suspect]
     Indication: MULTIPLE MYELOMA
     Dosage: QHS, ORAL; ORAL
     Route: 048
     Dates: start: 20030801
  3. DEXAMETHASONE TAB [Suspect]
     Indication: MULTIPLE MYELOMA
  4. ASPIRIN [Concomitant]
  5. PLAVIX [Concomitant]

REACTIONS (1)
  - CARDIOTOXICITY [None]
